FAERS Safety Report 6685050-7 (Version None)
Quarter: 2010Q2

REPORT INFORMATION
  Report Type: 
  Country: None (occurrence: None)
  Receive Date: 20100416
  Receipt Date: 20100412
  Transmission Date: 20101027
  Serious: Yes (Hospitalization)
  Sender: FDA-Public Use
  Company Number: A0837516A

PATIENT
  Age: 38 Year
  Sex: Female
  Weight: 127.3 kg

DRUGS (1)
  1. ROSIGLITAZONE [Suspect]
     Dosage: 8MG PER DAY
     Route: 048
     Dates: end: 20070101

REACTIONS (1)
  - CARDIAC DISORDER [None]
